FAERS Safety Report 14821445 (Version 1)
Quarter: 2018Q2

REPORT INFORMATION
  Report Type: Spontaneous
  Country: US (occurrence: US)
  Receive Date: 20180427
  Receipt Date: 20180427
  Transmission Date: 20180711
  Serious: No
  Sender: FDA-Public Use
  Company Number: US-ELI_LILLY_AND_COMPANY-US201804013170

PATIENT
  Sex: Male

DRUGS (2)
  1. BASAGLAR [Suspect]
     Active Substance: INSULIN GLARGINE
     Dosage: 30 U, UNKNOWN
     Route: 058
  2. BASAGLAR [Suspect]
     Active Substance: INSULIN GLARGINE
     Indication: PRODUCT USED FOR UNKNOWN INDICATION
     Dosage: BELOW 20 U, UNKNOWN
     Route: 058

REACTIONS (4)
  - Visual impairment [Not Recovered/Not Resolved]
  - Injection site pain [Unknown]
  - Incorrect dose administered [Unknown]
  - Underdose [Unknown]
